FAERS Safety Report 8249794-8 (Version None)
Quarter: 2012Q2

REPORT INFORMATION
  Report Type: 
  Country: None (occurrence: None)
  Receive Date: 20120402
  Receipt Date: 20120322
  Transmission Date: 20120825
  Serious: Yes (Other)
  Sender: FDA-Public Use
  Company Number: PHHY2012US025951

PATIENT
  Age: 50 Year
  Sex: Female

DRUGS (3)
  1. CYTARABINE [Concomitant]
     Dosage: 3 G/M2 EVERY 12 H
  2. IMATINIB MESYLATE [Suspect]
     Indication: CHRONIC MYELOID LEUKAEMIA
     Dosage: 400 MG, DAILY
  3. DASATINIB [Concomitant]
     Dosage: 140 MG, DAILY

REACTIONS (4)
  - LYMPHADENOPATHY [None]
  - INTERVERTEBRAL DISC PROTRUSION [None]
  - BACK PAIN [None]
  - SPLENOMEGALY [None]
